FAERS Safety Report 8450555-5 (Version None)
Quarter: 2012Q2

REPORT INFORMATION
  Report Type: 
  Country: None (occurrence: None)
  Receive Date: 20120620
  Receipt Date: 20120612
  Transmission Date: 20120825
  Serious: Yes (Hospitalization)
  Sender: FDA-Public Use
  Company Number: US-BAYER-2012-013021

PATIENT
  Age: 43 Year
  Sex: Female
  Weight: 54.422 kg

DRUGS (7)
  1. PROZAC [Concomitant]
     Dosage: UNK
  2. PREVPAC [Concomitant]
     Dosage: UNK
  3. YAZ [Suspect]
     Indication: PREMENSTRUAL SYNDROME
  4. YAZ [Suspect]
  5. YAZ [Suspect]
     Indication: ACNE
  6. YAZ [Suspect]
     Indication: CONTRACEPTION
     Dosage: UNK
     Dates: start: 20060101, end: 20090101
  7. PREVACID [Concomitant]
     Dosage: UNK

REACTIONS (10)
  - CHOLECYSTITIS CHRONIC [None]
  - ABDOMINAL PAIN [None]
  - EMOTIONAL DISTRESS [None]
  - ANXIETY [None]
  - INJURY [None]
  - GENERAL PHYSICAL HEALTH DETERIORATION [None]
  - GASTRITIS [None]
  - DYSPEPSIA [None]
  - GALLBLADDER DISORDER [None]
  - IRRITABLE BOWEL SYNDROME [None]
